FAERS Safety Report 10028251 (Version 1)
Quarter: 2014Q1

REPORT INFORMATION
  Report Type: Spontaneous
  Country: DE (occurrence: DE)
  Receive Date: 20140321
  Receipt Date: 20140321
  Transmission Date: 20141002
  Serious: Yes (Other)
  Sender: FDA-Public Use
  Company Number: DE-BAYER-2014-042284

PATIENT
  Age: 14 Year
  Sex: Male

DRUGS (5)
  1. ANTIHEMOPHILIC FACTOR VIII (RECOMBINANT), SUCROSE FORMULATED [Suspect]
     Indication: FACTOR VIII DEFICIENCY
     Dosage: 100 IU/KG, BW
     Route: 042
  2. ANTIHEMOPHILIC FACTOR VIII (RECOMBINANT), SUCROSE FORMULATED [Suspect]
     Indication: INTESTINAL HAEMATOMA
     Dosage: 4-5 IU/KG BW/H
     Route: 042
  3. ANTIHEMOPHILIC FACTOR VIII (RECOMBINANT), SUCROSE FORMULATED [Suspect]
     Indication: FACTOR VIII DEFICIENCY
     Dosage: 50 IU/KG, BW, TWICE DAILY
     Route: 042
  4. ANTIHEMOPHILIC FACTOR VIII (RECOMBINANT), SUCROSE FORMULATED [Suspect]
     Indication: FACTOR VIII DEFICIENCY
     Dosage: 40 IU/KG, BW 3 TIMES WEEKLY
     Route: 042
  5. ANTIHEMOPHILIC FACTOR VIII (RECOMBINANT), SUCROSE FORMULATED [Suspect]
     Indication: FACTOR VIII DEFICIENCY
     Dosage: 30-40 IU/KG TIW
     Route: 042

REACTIONS (3)
  - Portal vein thrombosis [Recovered/Resolved]
  - Haemorrhage [None]
  - Intestinal haematoma [None]
